FAERS Safety Report 6791109-6 (Version None)
Quarter: 2010Q2

REPORT INFORMATION
  Report Type: 
  Country: None (occurrence: None)
  Receive Date: 20100624
  Receipt Date: 20100615
  Transmission Date: 20101027
  Serious: Yes (Life-Threatening, Hospitalization)
  Sender: FDA-Public Use
  Company Number: SE-ABBOTT-10P-150-0649247-00

PATIENT
  Sex: Female
  Weight: 70 kg

DRUGS (6)
  1. CLARITHROMYCIN [Suspect]
     Indication: GASTRIC ULCER
     Dates: start: 20100521, end: 20100522
  2. NEXIUM [Suspect]
     Indication: GASTRIC ULCER
     Dates: start: 20100521, end: 20100522
  3. AMIMOX [Suspect]
     Indication: GASTRIC ULCER
     Dates: start: 20100521, end: 20100522
  4. METFORMIN HCL [Concomitant]
     Indication: DIABETES MELLITUS
     Dosage: 500
  5. INSULATARD [Concomitant]
     Indication: DRUG USE FOR UNKNOWN INDICATION
  6. NIFEREX [Concomitant]
     Indication: DRUG USE FOR UNKNOWN INDICATION
     Dosage: 100

REACTIONS (13)
  - DEEP VEIN THROMBOSIS [None]
  - DYSPNOEA [None]
  - ERYTHEMA [None]
  - GENITAL BURNING SENSATION [None]
  - HEART RATE DECREASED [None]
  - HYPOAESTHESIA [None]
  - PARAESTHESIA [None]
  - PRURITUS [None]
  - RASH ERYTHEMATOUS [None]
  - RESPIRATORY DISORDER [None]
  - SKIN BURNING SENSATION [None]
  - THROMBOSIS [None]
  - VOMITING [None]
